FAERS Safety Report 15278318 (Version 1)
Quarter: 2018Q3

REPORT INFORMATION
  Report Type: Spontaneous
  Country: US (occurrence: US)
  Receive Date: 20180814
  Receipt Date: 20180814
  Transmission Date: 20181010
  Serious: No
  Sender: FDA-Public Use
  Company Number: US-009507513-1808USA004761

PATIENT
  Sex: Female

DRUGS (1)
  1. ETONOGESTREL IMPLANT? UNKNOWN [Suspect]
     Active Substance: ETONOGESTREL
     Dosage: 1 IMPLANT
     Route: 059
     Dates: start: 2015

REACTIONS (3)
  - Complication of device removal [Not Recovered/Not Resolved]
  - Complication associated with device [Not Recovered/Not Resolved]
  - Weight increased [Not Recovered/Not Resolved]
